FAERS Safety Report 8887568 (Version 1)
Quarter: 2012Q4

REPORT INFORMATION
  Report Type: Spontaneous
  Country: US (occurrence: None)
  Receive Date: 20121101
  Receipt Date: 20121101
  Transmission Date: 20130627
  Serious: Yes (Other)
  Sender: FDA-Public Use
  Company Number: None

PATIENT
  Age: 42 Year
  Sex: Female
  Weight: 81.65 kg

DRUGS (1)
  1. TRAMADOL [Suspect]
     Indication: PAIN
     Dosage: took two times total
     Route: 048
     Dates: start: 20120926, end: 20121027

REACTIONS (8)
  - Nervousness [None]
  - Insomnia [None]
  - Tremor [None]
  - Jaw disorder [None]
  - Blood pressure increased [None]
  - Dyspnoea [None]
  - Pruritus [None]
  - Fear [None]
